FAERS Safety Report 8923923 (Version 1)
Quarter: 2012Q4

REPORT INFORMATION
  Report Type: Spontaneous
  Country: US (occurrence: None)
  Receive Date: 20121121
  Receipt Date: 20121121
  Transmission Date: 20130627
  Serious: Yes (Hospitalization)
  Sender: FDA-Public Use
  Company Number: None

PATIENT
  Age: 58 Year
  Sex: Male

DRUGS (2)
  1. PEG INTRON [Suspect]
     Dosage: 150 mcg 7 wk SQ subcutaneous
     Route: 058
     Dates: start: 20120226
  2. RIBAVIRIN [Suspect]
     Dosage: 200 mg 2 bid PO
     Route: 048
     Dates: start: 20120226

REACTIONS (4)
  - Abdominal infection [None]
  - Escherichia infection [None]
  - Platelet count decreased [None]
  - Thrombosis [None]
